FAERS Safety Report 6720810-5 (Version None)
Quarter: 2010Q2

REPORT INFORMATION
  Report Type: 
  Country: None (occurrence: None)
  Receive Date: 20100512
  Receipt Date: 20100503
  Transmission Date: 20101027
  Serious: No
  Sender: FDA-Public Use
  Company Number: US-BIOGENIDEC-2010BI015181

PATIENT
  Age: 68 Year
  Sex: Female

DRUGS (1)
  1. TYSABRI [Suspect]
     Indication: MULTIPLE SCLEROSIS
     Route: 042
     Dates: start: 20100205, end: 20100401

REACTIONS (6)
  - ABDOMINAL PAIN [None]
  - BACK PAIN [None]
  - FEELING COLD [None]
  - MUSCLE SPASMS [None]
  - PAIN [None]
  - TREMOR [None]
